FAERS Safety Report 24834084 (Version 1)
Quarter: 2025Q1

REPORT INFORMATION
  Report Type: Spontaneous
  Country: CA (occurrence: CA)
  Receive Date: 20250113
  Receipt Date: 20250113
  Transmission Date: 20250409
  Serious: Yes (Other)
  Sender: CSL BEHRING
  Company Number: CA-BEH-2025191429

PATIENT
  Sex: Male

DRUGS (2)
  1. HUMAN IMMUNOGLOBULIN G [Suspect]
     Active Substance: HUMAN IMMUNOGLOBULIN G
     Indication: Product used for unknown indication
     Route: 065
  2. CELLCEPT [Suspect]
     Active Substance: MYCOPHENOLATE MOFETIL
     Indication: Product used for unknown indication
     Route: 065

REACTIONS (11)
  - Scleroderma [Unknown]
  - Gastrooesophageal reflux disease [Unknown]
  - Inclusion body myositis [Unknown]
  - Asthenia [Unknown]
  - Ill-defined disorder [Unknown]
  - Loss of personal independence in daily activities [Unknown]
  - Dysphagia [Unknown]
  - Oesophageal motility disorder [Unknown]
  - Rash [Unknown]
  - Raynaud^s phenomenon [Unknown]
  - Telangiectasia [Unknown]
